FAERS Safety Report 6550633-1 (Version None)
Quarter: 2010Q1

REPORT INFORMATION
  Report Type: 
  Country: None (occurrence: None)
  Receive Date: 20100125
  Receipt Date: 20090226
  Transmission Date: 20100710
  Serious: No
  Sender: FDA-Public Use
  Company Number: US-TYCO HEALTHCARE/MALLINCKRODT-T200900580

PATIENT
  Sex: Female

DRUGS (1)
  1. OPTIRAY 350 [Suspect]
     Indication: SCAN BRAIN
     Dosage: 125 ML, SINGLE
     Route: 042
     Dates: start: 20090218, end: 20090218

REACTIONS (2)
  - CHEST DISCOMFORT [None]
  - THROAT IRRITATION [None]
